FAERS Safety Report 5959891-5 (Version None)
Quarter: 2008Q4

REPORT INFORMATION
  Report Type: 
  Country: None (occurrence: None)
  Receive Date: 20081119
  Receipt Date: 20081119
  Transmission Date: 20090506
  Serious: Yes (Life-Threatening)
  Sender: FDA-Public Use
  Company Number: None

PATIENT
  Sex: Female
  Weight: 74 kg

DRUGS (19)
  1. DASATINIB [Suspect]
     Indication: ACUTE LYMPHOCYTIC LEUKAEMIA
     Dosage: 70MG Q12H PO
     Route: 048
     Dates: start: 20080616, end: 20080624
  2. APAP TAB [Concomitant]
  3. ACYCLOVIR [Concomitant]
  4. ALLOPURINOL [Concomitant]
  5. AZTREONAM [Concomitant]
  6. CACO3 [Concomitant]
  7. CESPOFUNGIN [Concomitant]
  8. EZETIMIBE [Concomitant]
  9. NEUPOGEN [Concomitant]
  10. FUROSEMIDE [Concomitant]
  11. LEVOFLOXACIN [Concomitant]
  12. MGO [Concomitant]
  13. METRONIDAZOLE [Concomitant]
  14. METHYLOPREDNISOLONE [Concomitant]
  15. OXYCODONE HCL [Concomitant]
  16. SIMVASTATIN [Concomitant]
  17. TEMAZEPAN [Concomitant]
  18. VANCOMYCIN [Concomitant]
  19. VORICONAZOLE [Concomitant]

REACTIONS (2)
  - HYPERCAPNIA [None]
  - RESPIRATORY FAILURE [None]
